FAERS Safety Report 4375454-X (Version None)
Quarter: 2004Q2

REPORT INFORMATION
  Report Type: 
  Country: None (occurrence: None)
  Receive Date: 20040528
  Receipt Date: 20040510
  Transmission Date: 20050107
  Serious: No
  Sender: FDA-Public Use
  Company Number: CART-10255

PATIENT
  Age: 37 Year
  Sex: Male

DRUGS (1)
  1. CARTICEL [Suspect]
     Indication: ARTHROPATHY
     Dosage: 1 ONCE IS
     Dates: start: 20010122, end: 20010122

REACTIONS (9)
  - ARTHRITIS [None]
  - ARTHROFIBROSIS [None]
  - DISEASE PROGRESSION [None]
  - GRAFT OVERGROWTH [None]
  - JOINT ADHESION [None]
  - JOINT CREPITATION [None]
  - JOINT DISLOCATION [None]
  - PATELLOFEMORAL PAIN SYNDROME [None]
  - SCAR [None]
